FAERS Safety Report 11773326 (Version 1)
Quarter: 2015Q4

REPORT INFORMATION
  Report Type: Spontaneous
  Country: US (occurrence: US)
  Receive Date: 20151124
  Receipt Date: 20151124
  Transmission Date: 20160304
  Serious: Yes (Hospitalization, Other)
  Sender: FDA-Public Use
  Company Number: US-AMGEN-USASP2015123202

PATIENT
  Age: 74 Year
  Sex: Female

DRUGS (1)
  1. ENBREL [Suspect]
     Active Substance: ETANERCEPT
     Indication: RHEUMATOID ARTHRITIS
     Dosage: 50 MG, QWK
     Route: 058
     Dates: start: 2013

REACTIONS (6)
  - Localised infection [Unknown]
  - Cardiac operation [Recovered/Resolved]
  - Ulcer [Unknown]
  - Colostomy [Recovered/Resolved]
  - Thrombosis [Recovered/Resolved]
  - Colectomy [Recovered/Resolved]

NARRATIVE: CASE EVENT DATE: 20141120
